FAERS Safety Report 9495029 (Version 1)
Quarter: 2013Q3

REPORT INFORMATION
  Report Type: Spontaneous
  Country: US (occurrence: None)
  Receive Date: 20130830
  Receipt Date: 20130830
  Transmission Date: 20140515
  Serious: Yes (Other)
  Sender: FDA-Public Use
  Company Number: None

PATIENT
  Age: 38 Year
  Sex: Female
  Weight: 61.69 kg

DRUGS (1)
  1. IMITRX (GENERIC) [Suspect]
     Indication: MIGRAINE
     Dosage: 100 MG 1@ ONSET OF HA, MAY REPEATER 2 HR AFTER
     Dates: start: 1998

REACTIONS (5)
  - Head discomfort [None]
  - Abdominal discomfort [None]
  - Dysarthria [None]
  - Feeling drunk [None]
  - Gait disturbance [None]
